FAERS Safety Report 4575960-9 (Version None)
Quarter: 2005Q1

REPORT INFORMATION
  Report Type: 
  Country: None (occurrence: None)
  Receive Date: 20050127
  Receipt Date: 20041004
  Transmission Date: 20050727
  Serious: No
  Sender: FDA-Public Use
  Company Number: USA041079951

PATIENT
  Age: 44 Year
  Sex: Male
  Weight: 82 kg

DRUGS (3)
  1. STRATTERA [Suspect]
     Dosage: 40 MG DAY
     Dates: start: 20041001
  2. ZANTAC [Concomitant]
  3. ALLEGRA-D [Concomitant]

REACTIONS (4)
  - AGGRESSION [None]
  - APATHY [None]
  - FEELING ABNORMAL [None]
  - HYPOKINESIA [None]
